FAERS Safety Report 10524216 (Version 1)
Quarter: 2014Q4

REPORT INFORMATION
  Report Type: Spontaneous
  Country: ES (occurrence: ES)
  Receive Date: 20141017
  Receipt Date: 20141017
  Transmission Date: 20150528
  Serious: Yes (Other)
  Sender: FDA-Public Use
  Company Number: ES-JNJFOC-20141009505

PATIENT
  Age: 87 Year
  Sex: Male

DRUGS (2)
  1. ZALDIAR [Suspect]
     Active Substance: ACETAMINOPHEN\TRAMADOL HYDROCHLORIDE
     Indication: SPINAL COMPRESSION FRACTURE
     Dosage: ONCE A DAY
     Route: 048
     Dates: start: 2014, end: 20140813
  2. DIAZEPAM. [Interacting]
     Active Substance: DIAZEPAM
     Indication: SPINAL COMPRESSION FRACTURE
     Dosage: ONCE A DAY
     Route: 065
     Dates: start: 2014, end: 20140813

REACTIONS (2)
  - Drug interaction [Unknown]
  - Confusional state [Unknown]

NARRATIVE: CASE EVENT DATE: 20140809
